FAERS Safety Report 6258677-4 (Version None)
Quarter: 2009Q3

REPORT INFORMATION
  Report Type: 
  Country: None (occurrence: None)
  Receive Date: 20090707
  Receipt Date: 20090630
  Transmission Date: 20100115
  Serious: Yes (Life-Threatening, Hospitalization)
  Sender: FDA-Public Use
  Company Number: FR-CELGENEUS-056-C5013-09070051

PATIENT
  Sex: Male
  Weight: 67 kg

DRUGS (20)
  1. THALIDOMIDE [Suspect]
     Indication: MULTIPLE MYELOMA
     Route: 048
     Dates: start: 20090202
  2. THALIDOMIDE [Suspect]
     Route: 048
     Dates: start: 20090608
  3. MELPHALAN [Suspect]
     Indication: MULTIPLE MYELOMA
     Route: 065
     Dates: start: 20090202
  4. MELPHALAN [Suspect]
     Route: 065
     Dates: start: 20090608, end: 20090611
  5. PREDNISONE [Suspect]
     Indication: MULTIPLE MYELOMA
     Route: 065
     Dates: start: 20090202
  6. PREDNISONE [Suspect]
     Route: 065
     Dates: start: 20090608, end: 20090611
  7. AERIUS [Concomitant]
     Indication: RASH
     Route: 048
     Dates: start: 20090302
  8. NEXIUM [Concomitant]
     Route: 048
     Dates: start: 20090316, end: 20090327
  9. NEXIUM [Concomitant]
     Indication: GASTRITIS PROPHYLAXIS
     Route: 048
     Dates: start: 20090428
  10. LYRICA [Concomitant]
     Route: 048
     Dates: start: 20090326, end: 20090602
  11. KARDEGIC [Concomitant]
     Indication: THROMBOSIS PROPHYLAXIS
     Route: 048
     Dates: start: 20090428
  12. TANAKAN [Concomitant]
     Indication: DRUG USE FOR UNKNOWN INDICATION
     Route: 048
     Dates: start: 20090501
  13. DI-ANTALVIC [Concomitant]
     Route: 048
     Dates: start: 20090605
  14. DI-ANTALVIC [Concomitant]
  15. INSULIN [Concomitant]
     Indication: DIABETES MELLITUS
     Route: 058
     Dates: start: 20090205
  16. INSULIN [Concomitant]
     Route: 058
     Dates: start: 20090205
  17. PARACETAMOL [Concomitant]
     Route: 048
     Dates: start: 20090207, end: 20090604
  18. PARACETAMOL [Concomitant]
  19. ZOMETA [Concomitant]
     Route: 051
     Dates: start: 20090316
  20. ZOMETA [Concomitant]
     Indication: PROPHYLAXIS
     Route: 051
     Dates: start: 20090114, end: 20090114

REACTIONS (5)
  - ARTERIAL THROMBOSIS [None]
  - INTESTINAL ISCHAEMIA [None]
  - MULTI-ORGAN FAILURE [None]
  - SEPTIC SHOCK [None]
  - VENOUS THROMBOSIS [None]
